FAERS Safety Report 7110858-3 (Version None)
Quarter: 2010Q4

REPORT INFORMATION
  Report Type: 
  Country: None (occurrence: None)
  Receive Date: 20101118
  Receipt Date: 20101105
  Transmission Date: 20110411
  Serious: Yes (Other)
  Sender: FDA-Public Use
  Company Number: PHHY2010FR71031

PATIENT
  Sex: Male

DRUGS (6)
  1. EXELON [Suspect]
     Dosage: 4.6 MG/24HR
     Route: 062
  2. STALEVO 100 [Suspect]
     Dosage: 2 DF DAILY
     Route: 048
  3. ATHYMIL [Suspect]
     Dosage: 1 DF DAILY
     Route: 048
  4. CORDARONE [Suspect]
     Dosage: 1 DF DAILY
     Route: 048
  5. LASIX [Suspect]
     Dosage: 1 DF DAILY
     Route: 048
  6. KARDEGIC [Concomitant]
     Dosage: 1 DF DAILY
     Route: 048

REACTIONS (3)
  - APPLICATION SITE ERYTHEMA [None]
  - APPLICATION SITE REACTION [None]
  - SKIN PLAQUE [None]
